FAERS Safety Report 6388967-6 (Version None)
Quarter: 2009Q4

REPORT INFORMATION
  Report Type: 
  Country: None (occurrence: None)
  Receive Date: 20091001
  Receipt Date: 20090922
  Transmission Date: 20100525
  Serious: Yes (Life-Threatening, Other)
  Sender: FDA-Public Use
  Company Number: ADR28652009

PATIENT
  Age: 68 Year
  Sex: Female

DRUGS (8)
  1. RAMIPRIL [Suspect]
     Indication: LEFT VENTRICULAR HYPERTROPHY
     Dosage: 10MG, ORAL; 2.5MG ORAL
     Route: 048
     Dates: start: 20070918, end: 20080115
  2. RAMIPRIL [Suspect]
     Indication: LEFT VENTRICULAR HYPERTROPHY
     Dosage: 10MG, ORAL; 2.5MG ORAL
     Route: 048
     Dates: start: 20080115, end: 20080301
  3. FUROSEMIDE [Concomitant]
  4. DIHYDROCODEINE BITARTRATE INJ [Concomitant]
  5. IBRUPROFEN [Concomitant]
  6. LEVOTHYROXINE SODIUM [Concomitant]
  7. OMEPRAZOLE [Concomitant]
  8. TIBOLONE [Concomitant]

REACTIONS (8)
  - ASTHMA LATE ONSET [None]
  - BRONCHOSPASM [None]
  - CHRONIC OBSTRUCTIVE PULMONARY DISEASE [None]
  - COUGH [None]
  - DYSPNOEA [None]
  - LOSS OF CONSCIOUSNESS [None]
  - MALAISE [None]
  - WHEEZING [None]
